FAERS Safety Report 9649355 (Version 1)
Quarter: 2013Q4

REPORT INFORMATION
  Report Type: Spontaneous
  Country: FR (occurrence: FR)
  Receive Date: 20131028
  Receipt Date: 20131028
  Transmission Date: 20140711
  Serious: Yes (Other)
  Sender: FDA-Public Use
  Company Number: FR-JNJFOC-20131011272

PATIENT
  Age: 78 Year
  Sex: Female

DRUGS (3)
  1. XEPLION [Suspect]
     Indication: SCHIZOPHRENIA
     Dosage: DAY 1
     Route: 030
  2. XEPLION [Suspect]
     Indication: SCHIZOPHRENIA
     Dosage: DAY 30
     Route: 030
  3. XEPLION [Suspect]
     Indication: SCHIZOPHRENIA
     Dosage: DAY 8 (75 MG OR 100 MG)
     Route: 030

REACTIONS (6)
  - Schizophrenia [Unknown]
  - Delirium [Unknown]
  - Overdose [Unknown]
  - Drug prescribing error [Unknown]
  - Drug administration error [Unknown]
  - Off label use [Unknown]
